FAERS Safety Report 8317376-5 (Version None)
Quarter: 2012Q2

REPORT INFORMATION
  Report Type: 
  Country: None (occurrence: None)
  Receive Date: 20120427
  Receipt Date: 20120417
  Transmission Date: 20120825
  Serious: Yes (Life-Threatening)
  Sender: FDA-Public Use
  Company Number: CA-JNJFOC-20120407998

PATIENT
  Sex: Female
  Weight: 77 kg

DRUGS (7)
  1. ENTOCORT EC [Concomitant]
     Route: 065
  2. VITAMIN B-12 [Concomitant]
     Route: 065
  3. SOLU-CORTEF [Concomitant]
     Indication: PREMEDICATION
     Route: 065
  4. SYMBICORT [Concomitant]
     Route: 065
  5. REMICADE [Suspect]
     Indication: CROHN'S DISEASE
     Route: 042
  6. REMICADE [Suspect]
     Dosage: HAS HAD 10 INFUSIONS
     Route: 042
     Dates: start: 20120417
  7. ZOLOFT [Concomitant]
     Route: 065

REACTIONS (7)
  - DYSPNOEA [None]
  - FLUSHING [None]
  - ADVERSE EVENT [None]
  - HEADACHE [None]
  - WHEEZING [None]
  - HERPES ZOSTER [None]
  - INFUSION RELATED REACTION [None]
